FAERS Safety Report 10449706 (Version 1)
Quarter: 2014Q3

REPORT INFORMATION
  Report Type: Spontaneous
  Country: US (occurrence: US)
  Receive Date: 20140912
  Receipt Date: 20140912
  Transmission Date: 20150326
  Serious: No
  Sender: FDA-Public Use
  Company Number: US-INCYTE CORPORATION-2014IN001867

PATIENT
  Sex: Male

DRUGS (7)
  1. EXJADE [Concomitant]
     Active Substance: DEFERASIROX
  2. HYDROXYUREA. [Concomitant]
     Active Substance: HYDROXYUREA
  3. METOPROLOL [Concomitant]
     Active Substance: METOPROLOL
  4. JAKAFI [Suspect]
     Active Substance: RUXOLITINIB
     Indication: MYELOFIBROSIS
     Dosage: 20 MG, BID
     Route: 048
  5. LASIX [Concomitant]
     Active Substance: FUROSEMIDE
  6. LIPITOR [Concomitant]
     Active Substance: ATORVASTATIN CALCIUM
  7. LISINOPRIL. [Concomitant]
     Active Substance: LISINOPRIL

REACTIONS (1)
  - Stomatitis [Unknown]
